FAERS Safety Report 17408367 (Version 2)
Quarter: 2020Q1

REPORT INFORMATION
  Report Type: Spontaneous
  Country: US (occurrence: US)
  Receive Date: 20200212
  Receipt Date: 20200320
  Transmission Date: 20200409
  Serious: Yes (Other)
  Sender: FDA-Public Use
  Company Number: US-GILEAD-2020-0450628

PATIENT
  Age: 60 Year
  Sex: Male

DRUGS (42)
  1. VIREAD [Suspect]
     Active Substance: TENOFOVIR DISOPROXIL FUMARATE
     Indication: HIV INFECTION
     Dosage: UNK
     Route: 048
     Dates: start: 20130102, end: 20160316
  2. VIREAD [Suspect]
     Active Substance: TENOFOVIR DISOPROXIL FUMARATE
     Dosage: UNK
     Route: 048
  3. PERCOCET [OXYCODONE HYDROCHLORIDE;OXYCODONE TEREPHTHALATE;PARACETAMOL] [Concomitant]
     Active Substance: ACETAMINOPHEN\OXYCODONE HYDROCHLORIDE\OXYCODONE TEREPHTHALATE
  4. ATIVAN [Concomitant]
     Active Substance: LORAZEPAM
  5. ASA [Concomitant]
     Active Substance: ASPIRIN
  6. VERSED [Concomitant]
     Active Substance: MIDAZOLAM HYDROCHLORIDE
  7. FLUTICASONE. [Concomitant]
     Active Substance: FLUTICASONE
  8. CIPROFLOXACIN. [Concomitant]
     Active Substance: CIPROFLOXACIN
  9. LACTATED RINGERS SOLUTION [Concomitant]
     Active Substance: CALCIUM CHLORIDE\POTASSIUM CHLORIDE\SODIUM CHLORIDE\SODIUM LACTATE
  10. ZOFRAN [Concomitant]
     Active Substance: ONDANSETRON HYDROCHLORIDE
  11. SUBLIMAZE [Concomitant]
     Active Substance: FENTANYL CITRATE
  12. SENSORCAINE [BUPIVACAINE HYDROCHLORIDE] [Concomitant]
  13. PROPOFOL. [Concomitant]
     Active Substance: PROPOFOL
  14. MIDAZOLAM. [Concomitant]
     Active Substance: MIDAZOLAM
  15. STRIBILD [Suspect]
     Active Substance: COBICISTAT\ELVITEGRAVIR\EMTRICITABINE\TENOFOVIR DISOPROXIL FUMARATE
     Indication: HIV INFECTION
     Dosage: UNK
     Route: 048
     Dates: start: 20160304, end: 20160403
  16. GENVOYA [Concomitant]
     Active Substance: COBICISTAT\ELVITEGRAVIR\EMTRICITABINE\TENOFOVIR ALAFENAMIDE FUMARATE
  17. PRAVASTATIN. [Concomitant]
     Active Substance: PRAVASTATIN
  18. ATENOLOL. [Concomitant]
     Active Substance: ATENOLOL
  19. ABACAVIR. [Concomitant]
     Active Substance: ABACAVIR
  20. CELEBREX [Concomitant]
     Active Substance: CELECOXIB
  21. NEOSPORIN [NEOMYCIN SULFATE;POLYMYXIN B SULFATE] [Concomitant]
  22. DEXAMETHASONE. [Concomitant]
     Active Substance: DEXAMETHASONE
  23. OXYCONTIN [Concomitant]
     Active Substance: OXYCODONE HYDROCHLORIDE
  24. AZELASTINE. [Concomitant]
     Active Substance: AZELASTINE HYDROCHLORIDE
  25. VIRAMUNE [Concomitant]
     Active Substance: NEVIRAPINE
  26. NEVIRAPINE. [Concomitant]
     Active Substance: NEVIRAPINE
  27. TRAMADOL. [Concomitant]
     Active Substance: TRAMADOL
  28. HYDROCODONE BITARTRATE AND ACETAMINOPHEN [Concomitant]
     Active Substance: ACETAMINOPHEN\HYDROCODONE BITARTRATE
  29. ANCEF O [Concomitant]
  30. ALCOHOL. [Concomitant]
     Active Substance: ALCOHOL
  31. NORMAL SALINE [Concomitant]
     Active Substance: SODIUM CHLORIDE
  32. ACYCLOVIR ABBOTT VIAL [Concomitant]
  33. LIDOCAINE. [Concomitant]
     Active Substance: LIDOCAINE
  34. NAROPIN [Concomitant]
     Active Substance: ROPIVACAINE HYDROCHLORIDE
  35. ATORVASTATIN [Concomitant]
     Active Substance: ATORVASTATIN
  36. CEFDINIR. [Concomitant]
     Active Substance: CEFDINIR
  37. AZITHROMYCIN ANHYDROUS. [Concomitant]
     Active Substance: AZITHROMYCIN ANHYDROUS
  38. ZOLPIDEM [Concomitant]
     Active Substance: ZOLPIDEM TARTRATE
  39. CEPHALEXIN AMEL [Concomitant]
     Active Substance: CEPHALEXIN
  40. TYLENOL [Concomitant]
     Active Substance: ACETAMINOPHEN
  41. BACIBACT [Concomitant]
  42. CHLORAPREP [Concomitant]
     Active Substance: CHLORHEXIDINE GLUCONATE\ISOPROPYL ALCOHOL

REACTIONS (9)
  - Upper limb fracture [Not Recovered/Not Resolved]
  - Wrist fracture [Not Recovered/Not Resolved]
  - Osteopenia [Not Recovered/Not Resolved]
  - Pain [Unknown]
  - Economic problem [Unknown]
  - Anxiety [Unknown]
  - Osteoporosis [Not Recovered/Not Resolved]
  - Emotional distress [Unknown]
  - Anhedonia [Unknown]

NARRATIVE: CASE EVENT DATE: 20140604
